FAERS Safety Report 24962646 (Version 1)
Quarter: 2025Q1

REPORT INFORMATION
  Report Type: Other
  Country: CN (occurrence: CN)
  Receive Date: 20250212
  Receipt Date: 20250212
  Transmission Date: 20250408
  Serious: Yes (Other)
  Sender: BRECKENRIDGE PHARMACEUTICAL, INC.
  Company Number: CN-Breckenridge Pharmaceutical, Inc.-2171003

PATIENT
  Age: 7 Decade
  Sex: Female

DRUGS (1)
  1. POTASSIUM CHLORIDE [Suspect]
     Active Substance: POTASSIUM CHLORIDE
     Indication: Blood potassium decreased

REACTIONS (2)
  - Phlebitis [Recovered/Resolved]
  - Skin necrosis [Recovered/Resolved]
